FAERS Safety Report 23061019 (Version 2)
Quarter: 2023Q4

REPORT INFORMATION
  Report Type: Report from Study
  Country: US (occurrence: US)
  Receive Date: 20231013
  Receipt Date: 20231016
  Transmission Date: 20240109
  Serious: Yes (Other)
  Sender: FDA-Public Use
  Company Number: US-ABBVIE-5296404

PATIENT
  Sex: Male

DRUGS (1)
  1. HUMIRA [Suspect]
     Active Substance: ADALIMUMAB
     Indication: Psoriatic arthropathy
     Dosage: CF, FORM STRENGTH: 40 MG?FREQUENCY 0.5 MONTHS?LAST ADMIN DATE - 2023
     Route: 058
     Dates: start: 20230320

REACTIONS (6)
  - Blindness transient [Recovered/Resolved]
  - Vision blurred [Recovering/Resolving]
  - Visual impairment [Unknown]
  - Nervous system disorder [Recovered/Resolved]
  - Gastrointestinal disorder [Not Recovered/Not Resolved]
  - Gastrointestinal disorder [Unknown]

NARRATIVE: CASE EVENT DATE: 20230101
